FAERS Safety Report 10852912 (Version 2)
Quarter: 2015Q2

REPORT INFORMATION
  Report Type: Report from Study
  Country: FR (occurrence: FR)
  Receive Date: 20150223
  Receipt Date: 20150623
  Transmission Date: 20150821
  Serious: Yes (Hospitalization)
  Sender: FDA-Public Use
  Company Number: FR-ROCHE-1526144

PATIENT
  Age: 72 Year
  Sex: Male
  Weight: 85.6 kg

DRUGS (20)
  1. OBINUTUZUMAB [Suspect]
     Active Substance: OBINUTUZUMAB
     Route: 042
     Dates: start: 20150217
  2. LENALIDOMIDE [Suspect]
     Active Substance: LENALIDOMIDE
     Indication: DIFFUSE LARGE B-CELL LYMPHOMA
     Dosage: INDUCION PERIOD CYCLE 2?MOST RECENT DOSE PRIOR TO SAE: 12/JAN/2015
     Route: 048
     Dates: start: 20141124
  3. PIASCLEDINE (FRANCE) [Concomitant]
     Active Substance: AVOCADO OIL\SOYBEAN OIL
  4. LOPERAMIDE [Concomitant]
     Active Substance: LOPERAMIDE
     Route: 065
  5. EXFORGE [Concomitant]
     Active Substance: AMLODIPINE BESYLATE\VALSARTAN
     Dosage: STRENGTH: 5/160
     Route: 065
  6. ZYMAD [Concomitant]
     Active Substance: CHOLECALCIFEROL
     Route: 065
  7. REVITALOSE [Concomitant]
     Route: 065
  8. XANAX [Concomitant]
     Active Substance: ALPRAZOLAM
     Dosage: 1 OR 2 DF THREE TIMES A DAY
     Route: 065
  9. AVLOCARDYL [Concomitant]
     Active Substance: PROPRANOLOL HYDROCHLORIDE
     Route: 065
  10. FLUDEX (FRANCE) [Concomitant]
     Route: 065
  11. ZOCOR [Concomitant]
     Active Substance: SIMVASTATIN
     Route: 065
  12. LENALIDOMIDE [Suspect]
     Active Substance: LENALIDOMIDE
     Route: 048
     Dates: start: 20150218
  13. METFORMIN [Concomitant]
     Active Substance: METFORMIN HYDROCHLORIDE
     Route: 065
  14. SMECTA [Concomitant]
     Active Substance: MONTMORILLONITE
     Route: 065
  15. JANUMET [Concomitant]
     Active Substance: METFORMIN HYDROCHLORIDE\SITAGLIPTIN PHOSPHATE
     Route: 065
  16. DIAMICRON LM [Concomitant]
     Route: 065
  17. SEBIPROX [Concomitant]
     Route: 065
  18. OBINUTUZUMAB [Suspect]
     Active Substance: OBINUTUZUMAB
     Indication: DIFFUSE LARGE B-CELL LYMPHOMA
     Dosage: INDUCION PERIOD CYCLE 2?MOST RECENT DOSE PRIOR TO SAE: 23/DEC/2014
     Route: 042
     Dates: start: 20141201
  19. SEROPLEX [Concomitant]
     Active Substance: ESCITALOPRAM OXALATE
     Route: 065
  20. NORMACOL [Concomitant]
     Active Substance: KARAYA GUM
     Route: 065

REACTIONS (1)
  - Cytomegalovirus infection [Recovered/Resolved]

NARRATIVE: CASE EVENT DATE: 20150121
